FAERS Safety Report 9661617 (Version 2)
Quarter: 2013Q4

REPORT INFORMATION
  Report Type: Spontaneous
  Country: US (occurrence: US)
  Receive Date: 20131031
  Receipt Date: 20131031
  Transmission Date: 20140711
  Serious: No
  Sender: FDA-Public Use
  Company Number: US-PURDUE-USA-2010-0051775

PATIENT
  Sex: Female

DRUGS (3)
  1. OXYCONTIN (NDA 22-272) [Suspect]
     Indication: PRODUCT USED FOR UNKNOWN INDICATION
     Dosage: 80 MG, TID
     Dates: start: 20100928
  2. OXYCONTIN (NDA 22-272) [Suspect]
     Dosage: 40 MG, TID
     Dates: start: 20100928
  3. ROXICODONE [Concomitant]
     Indication: PRODUCT USED FOR UNKNOWN INDICATION
     Dosage: UNK

REACTIONS (10)
  - Nausea [Unknown]
  - Headache [Unknown]
  - Vision blurred [Unknown]
  - Hyperhidrosis [Unknown]
  - Drug ineffective [Unknown]
  - Malaise [Unknown]
  - Vomiting [Unknown]
  - Abdominal pain upper [Unknown]
  - Drug intolerance [Unknown]
  - Dizziness [Unknown]
